FAERS Safety Report 4998770-7 (Version None)
Quarter: 2006Q2

REPORT INFORMATION
  Report Type: 
  Country: None (occurrence: None)
  Receive Date: 20060509
  Receipt Date: 20060425
  Transmission Date: 20061013
  Serious: Yes (Death)
  Sender: FDA-Public Use
  Company Number: 2006S1003722

PATIENT
  Age: 88 Year
  Sex: Male

DRUGS (8)
  1. CLOZAPINE [Suspect]
     Dosage: 12.5 MG;HS;ORAL
     Route: 048
     Dates: start: 20051201, end: 20060401
  2. CITALOPRAM HYDROBROMIDE [Concomitant]
  3. CARVEDILOL [Concomitant]
  4. DIGOXIN [Concomitant]
  5. FUROSEMIDE [Concomitant]
  6. AMLODIPINE BESYLATE [Concomitant]
  7. LOPERAMIDE [Concomitant]
  8. WARFARIN SODIUM [Concomitant]

REACTIONS (1)
  - DEATH [None]
